FAERS Safety Report 25303379 (Version 1)
Quarter: 2025Q2

REPORT INFORMATION
  Report Type: Report from Study
  Country: US (occurrence: US)
  Receive Date: 20250512
  Receipt Date: 20250512
  Transmission Date: 20250717
  Serious: No
  Sender: MALLINCKRODT
  Company Number: US-MALLINCKRODT-MNK202502173

PATIENT
  Age: 44 Year
  Sex: Female
  Weight: 254 kg

DRUGS (1)
  1. CORTICOTROPIN [Suspect]
     Active Substance: CORTICOTROPIN
     Indication: Punctate keratitis
     Dates: start: 20250408

REACTIONS (5)
  - Injection site pain [Recovering/Resolving]
  - Injection site extravasation [Unknown]
  - Hypersensitivity [Not Recovered/Not Resolved]
  - Device delivery system issue [Unknown]
  - Therapy non-responder [Unknown]

NARRATIVE: CASE EVENT DATE: 20250401
